FAERS Safety Report 12406918 (Version 1)
Quarter: 2016Q2

REPORT INFORMATION
  Report Type: Report from Study
  Country: KR (occurrence: KR)
  Receive Date: 20160526
  Receipt Date: 20160526
  Transmission Date: 20160815
  Serious: Yes (Other)
  Sender: FDA-Public Use
  Company Number: KR-ASTELLAS-2016US020350

PATIENT
  Age: 66 Year
  Sex: Male

DRUGS (6)
  1. SORAFENIB [Suspect]
     Active Substance: SORAFENIB
     Route: 048
     Dates: start: 20090821
  2. ERLOTINIB [Suspect]
     Active Substance: ERLOTINIB
     Dosage: UNK UNK, UNKNOWN FREQ.
     Route: 048
     Dates: end: 20111123
  3. SORAFENIB [Suspect]
     Active Substance: SORAFENIB
     Indication: NON-SMALL CELL LUNG CANCER
     Route: 048
     Dates: start: 20090812
  4. ERLOTINIB [Suspect]
     Active Substance: ERLOTINIB
     Route: 048
     Dates: start: 20091104, end: 20091108
  5. ERLOTINIB [Suspect]
     Active Substance: ERLOTINIB
     Indication: NON-SMALL CELL LUNG CANCER
     Route: 048
     Dates: start: 20090812
  6. SORAFENIB [Suspect]
     Active Substance: SORAFENIB
     Dosage: UNK UNK, UNKNOWN FREQ.
     Route: 048
     Dates: end: 20111123

REACTIONS (2)
  - Mucosal inflammation [Unknown]
  - Decreased appetite [Unknown]
